FAERS Safety Report 7270076-5 (Version None)
Quarter: 2010Q4

REPORT INFORMATION
  Report Type: 
  Country: None (occurrence: None)
  Receive Date: 20101130
  Receipt Date: 20090803
  Transmission Date: 20110411
  Serious: Yes (Hospitalization)
  Sender: FDA-Public Use
  Company Number: 2009SP017675

PATIENT
  Age: 25 Year
  Sex: Female
  Weight: 58.9676 kg

DRUGS (12)
  1. NUVARING [Suspect]
     Indication: HORMONE LEVEL ABNORMAL
     Dosage: 1 DF; QM; VAG
     Route: 067
     Dates: start: 20070513, end: 20070630
  2. SINGULAIR [Concomitant]
  3. ALBUTEROL [Concomitant]
  4. MAXALT [Concomitant]
  5. AMERGE [Concomitant]
  6. IBUPROFEN [Concomitant]
  7. LEXAPRO [Concomitant]
  8. MIRENA [Concomitant]
  9. NEURONTIN [Concomitant]
  10. NIFEDIPINE [Concomitant]
  11. METHOTREXATE [Concomitant]
  12. ZONEGRAN [Concomitant]

REACTIONS (7)
  - ASTHMA [None]
  - HEADACHE [None]
  - IRON DEFICIENCY ANAEMIA [None]
  - MIGRAINE [None]
  - OROPHARYNGEAL PAIN [None]
  - PAIN [None]
  - PULMONARY EMBOLISM [None]
